FAERS Safety Report 4678731-8 (Version None)
Quarter: 2005Q2

REPORT INFORMATION
  Report Type: 
  Country: None (occurrence: None)
  Receive Date: 20050531
  Receipt Date: 20050516
  Transmission Date: 20051028
  Serious: Yes (Hospitalization)
  Sender: FDA-Public Use
  Company Number: HQWYE334824MAR05

PATIENT
  Age: 37 Year
  Sex: Male

DRUGS (1)
  1. EFFEXOR [Suspect]
     Indication: DEPRESSION
     Dates: start: 20050101

REACTIONS (10)
  - BLINDNESS [None]
  - CHEST PAIN [None]
  - CONFUSIONAL STATE [None]
  - DELUSION [None]
  - EMOTIONAL DISORDER [None]
  - FEAR [None]
  - HEADACHE [None]
  - PARANOIA [None]
  - PSYCHOTIC DISORDER [None]
  - RASH [None]
